FAERS Safety Report 19074736 (Version 1)
Quarter: 2021Q1

REPORT INFORMATION
  Report Type: Spontaneous
  Country: US (occurrence: US)
  Receive Date: 20210330
  Receipt Date: 20210330
  Transmission Date: 20210420
  Serious: Yes (Hospitalization)
  Sender: FDA-Public Use
  Company Number: US-ASTRAZENECA-2021A186291

PATIENT
  Age: 82 Year
  Sex: Female

DRUGS (1)
  1. BRILINTA [Suspect]
     Active Substance: TICAGRELOR
     Indication: ARTERIAL STENT INSERTION
     Route: 048
     Dates: start: 202010

REACTIONS (4)
  - Rash macular [Unknown]
  - Contusion [Recovered/Resolved]
  - Anxiety [Unknown]
  - Mouth haemorrhage [Recovered/Resolved]
